FAERS Safety Report 6413372-3 (Version None)
Quarter: 2009Q4

REPORT INFORMATION
  Report Type: 
  Country: None (occurrence: None)
  Receive Date: 20091026
  Receipt Date: 20091019
  Transmission Date: 20100525
  Serious: Yes (Death)
  Sender: FDA-Public Use
  Company Number: DE-ROCHE-663976

PATIENT
  Age: 61 Year
  Sex: Male

DRUGS (9)
  1. GANCICLOVIR SODIUM [Suspect]
     Route: 065
  2. SULFAMETHOXAZOLE AND TRIMETHOPRIM [Suspect]
     Route: 065
  3. CEFUROXIME [Suspect]
     Indication: PROPHYLAXIS
     Dosage: ADMINISTERED FOR THREE DAYS
     Route: 065
  4. DOXYCYCLINE [Suspect]
     Dosage: ADMINISTERED FOR THREE DAYS
     Route: 048
  5. POLYMYXIN [Suspect]
     Dosage: FOR 3 DAYS
     Route: 048
  6. GENTAMICIN [Suspect]
     Dosage: FOR THREE DAYS
     Route: 048
  7. ITRACONAZOLE [Suspect]
     Indication: ANTIFUNGAL PROPHYLAXIS
     Dosage: FORM: LIQUID FORMULATION
     Route: 048
  8. AMPHOTERICIN B [Suspect]
     Indication: ANTIFUNGAL PROPHYLAXIS
     Dosage: FORM: I ML OF LIQUID FORMULATION
     Route: 048
  9. MUPIROCIN [Suspect]
     Dosage: APPLIED NASALLY FOR A PERIOD OF 14 DAYS
     Route: 050

REACTIONS (1)
  - ASPERGILLOSIS [None]
